FAERS Safety Report 24086006 (Version 1)
Quarter: 2024Q3

REPORT INFORMATION
  Report Type: Spontaneous
  Country: ZA (occurrence: None)
  Receive Date: 20240712
  Receipt Date: 20240712
  Transmission Date: 20241017
  Serious: Yes (Death)
  Sender: ASTRAZENECA
  Company Number: 2024A157136

PATIENT
  Age: 30681 Day
  Sex: Female

DRUGS (4)
  1. BUDESONIDE\FORMOTEROL [Suspect]
     Active Substance: BUDESONIDE\FORMOTEROL
     Indication: Asthma
     Dosage: 60 DOSE 160/4.5 MCG; 60 UG/INHAL; UNKNOWN UNKNOWN
     Route: 055
  2. STOPAYNE [Concomitant]
     Indication: Pain
  3. CARBILEV 25 25/100 MG [Concomitant]
     Indication: Parkinson^s disease
  4. CITALOPRAM HYDROBROMIDE [Concomitant]
     Active Substance: CITALOPRAM HYDROBROMIDE
     Indication: Psychiatric investigation

REACTIONS (3)
  - Pulmonary fibrosis [Fatal]
  - Pneumonia [Fatal]
  - Coronavirus test [Unknown]
